FAERS Safety Report 5630060-1 (Version None)
Quarter: 2008Q1

REPORT INFORMATION
  Report Type: 
  Country: None (occurrence: None)
  Receive Date: 20080218
  Receipt Date: 20080211
  Transmission Date: 20080703
  Serious: Yes (Other)
  Sender: FDA-Public Use
  Company Number: PHBS2008BR01129

PATIENT
  Age: 85 Year
  Sex: Female
  Weight: 51 kg

DRUGS (4)
  1. EXELON [Suspect]
     Indication: DEMENTIA ALZHEIMER'S TYPE
     Dosage: 3 MG, BID
     Route: 048
     Dates: start: 20080115
  2. RISPERIDONE [Concomitant]
     Indication: ANXIETY
     Dosage: 1 DF, QHS
     Route: 048
     Dates: start: 20070101, end: 20071121
  3. SUSTRATE [Concomitant]
     Indication: CARDIAC DISORDER
     Dosage: UNK, BID
     Route: 048
     Dates: start: 19980101
  4. FLUVACCIN [Concomitant]
     Indication: PROPHYLAXIS
     Dosage: ONCE/YEAR
     Route: 030

REACTIONS (8)
  - ANOREXIA [None]
  - CONFUSIONAL STATE [None]
  - INFLUENZA LIKE ILLNESS [None]
  - MEMORY IMPAIRMENT [None]
  - SOMNOLENCE [None]
  - SPEECH DISORDER [None]
  - STARING [None]
  - SUICIDAL IDEATION [None]
